FAERS Safety Report 5888037-7 (Version None)
Quarter: 2008Q3

REPORT INFORMATION
  Report Type: 
  Country: None (occurrence: None)
  Receive Date: 20080918
  Receipt Date: 20080910
  Transmission Date: 20090109
  Serious: Yes (Other)
  Sender: FDA-Public Use
  Company Number: GB-ROCHE-585696

PATIENT
  Sex: Male

DRUGS (1)
  1. VALCYTE [Suspect]
     Route: 065
     Dates: start: 20060101

REACTIONS (2)
  - PORTAL HYPERTENSION [None]
  - VARICES OESOPHAGEAL [None]
